FAERS Safety Report 6660664-9 (Version None)
Quarter: 2010Q1

REPORT INFORMATION
  Report Type: 
  Country: None (occurrence: None)
  Receive Date: 20100331
  Receipt Date: 20100324
  Transmission Date: 20100710
  Serious: Yes (Death, Hospitalization)
  Sender: FDA-Public Use
  Company Number: JP-BAYER-200914426BYL

PATIENT
  Age: 63 Year
  Sex: Male
  Weight: 79 kg

DRUGS (2)
  1. NEXAVAR [Suspect]
     Indication: HEPATIC NEOPLASM MALIGNANT
     Dosage: TOTAL DAILY DOSE: 800 MG  UNIT DOSE: 200 MG
     Route: 048
     Dates: start: 20091104, end: 20100114
  2. BARACLUDE [Concomitant]
     Indication: HEPATITIS B
     Dosage: UNIT DOSE: 0.5 MG
     Route: 048
     Dates: start: 20070124, end: 20100127

REACTIONS (8)
  - ANAEMIA [None]
  - DYSPHONIA [None]
  - GASTRIC HAEMORRHAGE [None]
  - HEPATIC FAILURE [None]
  - HEPATIC FUNCTION ABNORMAL [None]
  - HEPATIC NEOPLASM MALIGNANT [None]
  - MALIGNANT NEOPLASM PROGRESSION [None]
  - METASTASES TO STOMACH [None]
